FAERS Safety Report 5198642-1 (Version None)
Quarter: 2007Q1

REPORT INFORMATION
  Report Type: 
  Country: None (occurrence: None)
  Receive Date: 20070104
  Receipt Date: 20061221
  Transmission Date: 20070707
  Serious: Yes (Other)
  Sender: FDA-Public Use
  Company Number: GSK1361

PATIENT
  Age: 24 Year
  Sex: Male

DRUGS (6)
  1. ACETAMINOPHEN [Suspect]
     Indication: DRUG USE FOR UNKNOWN INDICATION
     Route: 048
  2. ZOPICLONE [Suspect]
     Route: 065
  3. NIFEDIPINE [Suspect]
     Route: 065
  4. CLONIXIN [Suspect]
     Route: 065
  5. ROFECOXIB [Suspect]
     Route: 065
  6. TAMOXIFEN CITRATE [Suspect]
     Route: 065

REACTIONS (2)
  - OVERDOSE [None]
  - RENAL FAILURE [None]
